FAERS Safety Report 7442880-1 (Version None)
Quarter: 2011Q2

REPORT INFORMATION
  Report Type: 
  Country: None (occurrence: None)
  Receive Date: 20110428
  Receipt Date: 20110419
  Transmission Date: 20111010
  Serious: Yes (Other)
  Sender: FDA-Public Use
  Company Number: US-ASTRAZENECA-2011SE22472

PATIENT
  Age: 53 Year
  Sex: Female

DRUGS (10)
  1. RABEPRAZOLE SODIUM [Interacting]
     Route: 065
  2. SYMBICORT [Suspect]
     Route: 055
  3. ZOFRAN [Interacting]
     Route: 065
  4. PREDNISONE [Interacting]
     Route: 065
  5. LISINOPRIL [Interacting]
     Route: 048
  6. NICODERM CQ [Interacting]
     Indication: SMOKING CESSATION THERAPY
     Route: 062
  7. NICOTINE POLACRILEX [Interacting]
     Indication: SMOKING CESSATION THERAPY
     Route: 065
  8. GLYBURIDE [Interacting]
     Route: 065
  9. CLOPIDOGREL BISULFATE [Interacting]
     Route: 065
  10. CYCLOBENZAPRINE HCL [Interacting]
     Route: 065

REACTIONS (5)
  - DYSPEPSIA [None]
  - DRUG ADMINISTRATION ERROR [None]
  - DRUG INTERACTION [None]
  - NIGHTMARE [None]
  - HALLUCINATION [None]
